FAERS Safety Report 16928436 (Version 1)
Quarter: 2019Q4

REPORT INFORMATION
  Report Type: Spontaneous
  Country: SE (occurrence: SE)
  Receive Date: 20191017
  Receipt Date: 20191017
  Transmission Date: 20200122
  Serious: Yes (Disabling)
  Sender: FDA-Public Use
  Company Number: SE-TEVA-2019-SE-1122438

PATIENT
  Sex: Male
  Weight: 55 kg

DRUGS (2)
  1. LYRICA [Suspect]
     Active Substance: PREGABALIN
     Indication: PARALYSIS
     Dosage: 100 MG 1 DAYS
     Route: 065
     Dates: start: 20050822
  2. TRAMADOL. [Suspect]
     Active Substance: TRAMADOL
     Indication: PARALYSIS
     Dosage: 100 MG 1 DAYS
     Route: 065
     Dates: start: 20050822

REACTIONS (4)
  - Anxiety [Not Recovered/Not Resolved]
  - Headache [Not Recovered/Not Resolved]
  - Tic [Not Recovered/Not Resolved]
  - Abdominal pain [Not Recovered/Not Resolved]
